FAERS Safety Report 24371432 (Version 1)
Quarter: 2024Q3

REPORT INFORMATION
  Report Type: Report from Study
  Country: US (occurrence: US)
  Receive Date: 20240927
  Receipt Date: 20240927
  Transmission Date: 20241016
  Serious: Yes (Other)
  Sender: GILEAD
  Company Number: US-GILEAD-2024-0689131

PATIENT
  Sex: Male

DRUGS (3)
  1. AZTREONAM LYSINE [Suspect]
     Active Substance: AZTREONAM LYSINE
     Indication: Cystic fibrosis
     Dosage: INHALE 75MG VIA ALTERA NEBULIZER IN THE MORNING 75 MG AT NOON 75 MG BEFORE BEDTIME EVERY OTHER MONTH
     Route: 055
  2. TRIKAFTA [Concomitant]
     Active Substance: ELEXACAFTOR\IVACAFTOR\TEZACAFTOR
     Indication: Cystic fibrosis
     Dosage: 100/50/75 MG AND 150 MG TAB 21S
  3. TOBI [Concomitant]
     Active Substance: TOBRAMYCIN
     Dosage: UNK

REACTIONS (1)
  - Cystic fibrosis [Unknown]
